FAERS Safety Report 14733882 (Version 2)
Quarter: 2018Q2

REPORT INFORMATION
  Report Type: Spontaneous
  Country: US (occurrence: US)
  Receive Date: 20180409
  Receipt Date: 20180514
  Transmission Date: 20180711
  Serious: No
  Sender: FDA-Public Use
  Company Number: US-GLAXOSMITHKLINE-US2018054960

PATIENT
  Age: 88 Year
  Sex: Male

DRUGS (1)
  1. VOLTAREN [Suspect]
     Active Substance: DICLOFENAC SODIUM
     Indication: JOINT EFFUSION
     Dosage: UNK UNK, TID

REACTIONS (3)
  - Rash [Unknown]
  - Product use issue [Unknown]
  - Product use in unapproved indication [Unknown]
